FAERS Safety Report 12361250 (Version 2)
Quarter: 2016Q2

REPORT INFORMATION
  Report Type: Report from Study
  Country: US (occurrence: US)
  Receive Date: 20160512
  Receipt Date: 20160603
  Transmission Date: 20160815
  Serious: Yes (Other)
  Sender: FDA-Public Use
  Company Number: US-BAYER-2016-086769

PATIENT
  Age: 79 Year
  Sex: Male

DRUGS (4)
  1. STIVARGA [Suspect]
     Active Substance: REGORAFENIB
     Indication: METASTASES TO LUNG
  2. STIVARGA [Suspect]
     Active Substance: REGORAFENIB
     Indication: COLON CANCER METASTATIC
     Dosage: 160 MG, QD
     Route: 048
     Dates: start: 20160421, end: 20160504
  3. STIVARGA [Suspect]
     Active Substance: REGORAFENIB
     Indication: METASTASES TO LIVER
  4. NORCO [Concomitant]
     Active Substance: ACETAMINOPHEN\HYDROCODONE BITARTRATE

REACTIONS (17)
  - Asthenia [Not Recovered/Not Resolved]
  - Poor quality sleep [Not Recovered/Not Resolved]
  - Feeling abnormal [None]
  - Decreased appetite [Not Recovered/Not Resolved]
  - Pollakiuria [None]
  - Fall [None]
  - Hallucination, visual [Not Recovered/Not Resolved]
  - Drug intolerance [None]
  - Fluid intake reduced [None]
  - Respiratory tract congestion [None]
  - White blood cell count increased [Not Recovered/Not Resolved]
  - Muscular weakness [None]
  - Fatigue [Recovering/Resolving]
  - Dysphonia [Not Recovered/Not Resolved]
  - Confusional state [Not Recovered/Not Resolved]
  - Cough [None]
  - Sputum retention [None]

NARRATIVE: CASE EVENT DATE: 20160423
